FAERS Safety Report 8871935 (Version 1)
Quarter: 2012Q4

REPORT INFORMATION
  Report Type: Spontaneous
  Country: US (occurrence: None)
  Receive Date: 20121026
  Receipt Date: 20121026
  Transmission Date: 20130627
  Serious: Yes (Other)
  Sender: FDA-Public Use
  Company Number: None

PATIENT
  Age: 14 Year
  Sex: Male
  Weight: 58.51 kg

DRUGS (1)
  1. BENGAY [Suspect]
     Indication: PAIN ANKLE
     Dosage: 1 application once top
     Route: 061
     Dates: start: 20121017, end: 20121017

REACTIONS (3)
  - Application site burn [None]
  - Chemical injury [None]
  - Gait disturbance [None]
